FAERS Safety Report 14783488 (Version 1)
Quarter: 2018Q2

REPORT INFORMATION
  Report Type: Not Available
  Country: US (occurrence: US)
  Receive Date: 20180420
  Receipt Date: 20180420
  Transmission Date: 20180711
  Serious: No
  Sender: FDA-Public Use
  Company Number: US-NEUROCRINE BIOSCIENCES INC.-2018NBI00994

PATIENT
  Age: 52 Year
  Sex: Female
  Weight: 77.18 kg

DRUGS (14)
  1. TRAMADOL. [Concomitant]
     Active Substance: TRAMADOL
     Indication: PAIN
  2. FLUOXETINE [Concomitant]
     Active Substance: FLUOXETINE HYDROCHLORIDE
  3. BOTOX [Concomitant]
     Active Substance: ONABOTULINUMTOXINA
  4. RITUXAN INFUSION [Concomitant]
  5. INGREZZA [Suspect]
     Active Substance: VALBENAZINE
     Indication: DYSTONIA
     Route: 048
     Dates: start: 201712
  6. METHOTREXATE. [Concomitant]
     Active Substance: METHOTREXATE
  7. ALPRAZOLAM. [Concomitant]
     Active Substance: ALPRAZOLAM
  8. LAMOTRIGINE. [Concomitant]
     Active Substance: LAMOTRIGINE
  9. LYRICA [Concomitant]
     Active Substance: PREGABALIN
  10. METHYLPHENIDATE. [Concomitant]
     Active Substance: METHYLPHENIDATE
  11. TIZANIDINE. [Concomitant]
     Active Substance: TIZANIDINE
     Indication: MUSCLE SPASMS
  12. INGREZZA [Suspect]
     Active Substance: VALBENAZINE
     Indication: TARDIVE DYSKINESIA
     Route: 048
     Dates: start: 201712, end: 201712
  13. BELSOMRA [Concomitant]
     Active Substance: SUVOREXANT
  14. NARATRIPTAN [Concomitant]
     Active Substance: NARATRIPTAN HYDROCHLORIDE
     Indication: MIGRAINE

REACTIONS (3)
  - Somnolence [Unknown]
  - Fatigue [Not Recovered/Not Resolved]
  - Asthenia [Unknown]

NARRATIVE: CASE EVENT DATE: 201801
